FAERS Safety Report 9395898 (Version 1)
Quarter: 2013Q3

REPORT INFORMATION
  Report Type: Spontaneous
  Country: DE (occurrence: DE)
  Receive Date: 20130711
  Receipt Date: 20130711
  Transmission Date: 20140515
  Serious: Yes (Life-Threatening)
  Sender: FDA-Public Use
  Company Number: DE-GLAXOSMITHKLINE-B0907279A

PATIENT
  Age: 90 Year
  Sex: Female

DRUGS (1)
  1. CEFUROXIM [Suspect]
     Indication: BRONCHITIS
     Dosage: 500MG TWICE PER DAY
     Route: 048
     Dates: start: 20130525, end: 20130531

REACTIONS (2)
  - Clostridium difficile infection [Not Recovered/Not Resolved]
  - Clostridium difficile colitis [Not Recovered/Not Resolved]
